FAERS Safety Report 8484951-7 (Version None)
Quarter: 2012Q3

REPORT INFORMATION
  Report Type: 
  Country: None (occurrence: None)
  Receive Date: 20120703
  Receipt Date: 20120621
  Transmission Date: 20120928
  Serious: Yes (Other)
  Sender: FDA-Public Use
  Company Number: JP-PFIZER INC-2012146252

PATIENT
  Age: 82 Year
  Sex: Female

DRUGS (10)
  1. ENALAPRIL MALEATE [Concomitant]
     Dosage: UNK
  2. DIGOXIN [Concomitant]
     Dosage: UNK
     Route: 048
  3. BASSAMIN [Concomitant]
     Dosage: UNK
  4. LANSOPRAZOLE [Concomitant]
     Dosage: UNK
  5. FUROSEMIDE [Concomitant]
     Dosage: UNK
     Route: 048
  6. WARFARIN [Concomitant]
     Dosage: UNK
     Route: 048
  7. CELEBREX [Suspect]
     Dosage: 400 MG, DAILY
     Route: 048
     Dates: start: 20120528, end: 20120601
  8. JANUVIA [Concomitant]
     Dosage: UNK
  9. CELEBREX [Suspect]
     Dosage: 200 MG DAILY
     Route: 048
     Dates: start: 20120601
  10. LEVOTHYROXINE SODIUM [Concomitant]
     Dosage: UNK
     Route: 048

REACTIONS (2)
  - DEMENTIA [None]
  - RESTLESSNESS [None]
